FAERS Safety Report 5331419-2 (Version None)
Quarter: 2007Q2

REPORT INFORMATION
  Report Type: 
  Country: None (occurrence: None)
  Receive Date: 20070516
  Receipt Date: 20070507
  Transmission Date: 20071010
  Serious: Yes (Other)
  Sender: FDA-Public Use
  Company Number: OSCN-PR-0702S-0083

PATIENT
  Age: 67 Year
  Sex: Female
  Weight: 72 kg

DRUGS (15)
  1. OMNISCAN [Suspect]
     Indication: RENAL ARTERY STENOSIS
     Dosage: 20 ML, SINGLE DOSE, I.V.
     Route: 042
     Dates: start: 20040302, end: 20040302
  2. CALCIUM CARBONATE [Concomitant]
  3. NEPHRO-VITE [Concomitant]
  4. ASCORBIC ACID (VITAMIN C) [Concomitant]
  5. DILTIAZEM (CARTIA XT) [Concomitant]
  6. ATORVASTATIN CALCIUM (LIPITOR) [Concomitant]
  7. FOLIC ACID (FOLATE) [Concomitant]
  8. SINGULAIR [Concomitant]
  9. COZAAR [Concomitant]
  10. FLUTICASONE PROPIONATE (FLONASE) [Concomitant]
  11. LANTUS [Concomitant]
  12. PRILOSEC [Concomitant]
  13. SERETIDE (ADVAIR_ [Concomitant]
  14. NORVASC [Concomitant]
  15. LANTHANUM CARBONATE (FOSRENOL) [Concomitant]

REACTIONS (3)
  - NEPHROGENIC FIBROSING DERMOPATHY [None]
  - PNEUMONIA [None]
  - RESPIRATORY FAILURE [None]
